FAERS Safety Report 13160231 (Version 11)
Quarter: 2018Q3

REPORT INFORMATION
  Report Type: Spontaneous
  Country: US (occurrence: US)
  Receive Date: 20170127
  Receipt Date: 20180821
  Transmission Date: 20181010
  Serious: Yes (Hospitalization, Disabling, Other)
  Sender: FDA-Public Use
  Company Number: US-ACTELION-A-NJ2017-149081

PATIENT
  Age: 65 Year
  Sex: Female
  Weight: 68.93 kg

DRUGS (4)
  1. OPSUMIT [Suspect]
     Active Substance: MACITENTAN
     Indication: PULMONARY ARTERIAL HYPERTENSION
     Dosage: 10 MG, QD
     Route: 048
     Dates: start: 20160108
  2. REVATIO [Concomitant]
     Active Substance: SILDENAFIL CITRATE
  3. FLOLAN [Concomitant]
     Active Substance: EPOPROSTENOL SODIUM
  4. WARFARIN [Concomitant]
     Active Substance: WARFARIN

REACTIONS (13)
  - Fluid overload [Unknown]
  - Drug dose omission [Unknown]
  - Malaise [Unknown]
  - Dyspnoea [Unknown]
  - Peripheral swelling [Unknown]
  - Right ventricular failure [Unknown]
  - Chest discomfort [Unknown]
  - Hypotension [Unknown]
  - Thrombosis [Unknown]
  - Headache [Unknown]
  - Pulmonary arterial hypertension [Unknown]
  - Condition aggravated [Unknown]
  - Dizziness [Unknown]
